FAERS Safety Report 20340908 (Version 3)
Quarter: 2022Q4

REPORT INFORMATION
  Report Type: Spontaneous
  Country: US (occurrence: US)
  Receive Date: 20220117
  Receipt Date: 20221104
  Transmission Date: 20230113
  Serious: No
  Sender: FDA-Public Use
  Company Number: US-PFM-2022-00192

PATIENT
  Age: 0 Year
  Sex: Male
  Weight: 9.469 kg

DRUGS (2)
  1. HEMANGEOL [Suspect]
     Active Substance: PROPRANOLOL HYDROCHLORIDE
     Indication: Haemangioma
     Dosage: 1 ML, BID (2/DAY)
     Route: 048
  2. HEMANGEOL [Suspect]
     Active Substance: PROPRANOLOL HYDROCHLORIDE
     Dosage: 2.5 ML, BID (2/DAY)
     Route: 048
     Dates: start: 20211111

REACTIONS (4)
  - Illness [Recovered/Resolved]
  - Pyrexia [Unknown]
  - Viral infection [Unknown]
  - Sleep disorder [Unknown]

NARRATIVE: CASE EVENT DATE: 20210915
